FAERS Safety Report 6874082-1 (Version None)
Quarter: 2010Q3

REPORT INFORMATION
  Report Type: 
  Country: None (occurrence: None)
  Receive Date: 20100723
  Receipt Date: 20090422
  Transmission Date: 20110219
  Serious: Yes (Other)
  Sender: FDA-Public Use
  Company Number: US-PFIZER INC-2009206342

PATIENT
  Sex: Female
  Weight: 68.934 kg

DRUGS (10)
  1. CHANTIX [Suspect]
     Indication: SMOKING CESSATION THERAPY
     Dosage: UNK
     Dates: start: 20090401
  2. ASPIRIN [Concomitant]
     Indication: CARDIAC DISORDER
     Dosage: HALF A TABLET
  3. NASONEX [Concomitant]
     Indication: MULTIPLE ALLERGIES
     Dosage: UNK
  4. SERZONE [Concomitant]
     Indication: DEPRESSION
     Dosage: UNK
  5. VYTORIN [Concomitant]
     Dosage: UNK
  6. PLAVIX [Concomitant]
     Dosage: UNK
  7. CALCIUM [Concomitant]
     Dosage: UNK
  8. VITAMIN D [Concomitant]
     Dosage: UNK
  9. MAGNESIUM [Concomitant]
     Dosage: UNK
  10. FISH OIL [Concomitant]
     Dosage: UNK

REACTIONS (5)
  - COGNITIVE DISORDER [None]
  - CRYING [None]
  - DISSOCIATION [None]
  - POOR QUALITY SLEEP [None]
  - THINKING ABNORMAL [None]
